FAERS Safety Report 7755511-8 (Version None)
Quarter: 2011Q3

REPORT INFORMATION
  Report Type: 
  Country: None (occurrence: None)
  Receive Date: 20110914
  Receipt Date: 20110831
  Transmission Date: 20111222
  Serious: Yes (Other)
  Sender: FDA-Public Use
  Company Number: 1029542

PATIENT
  Age: 33 Year
  Sex: Female

DRUGS (1)
  1. NALBUPHINE HCL [Suspect]
     Indication: MIGRAINE
     Dosage: LOWEST DOSE
     Dates: start: 20110801

REACTIONS (5)
  - SPEECH DISORDER [None]
  - DYSKINESIA [None]
  - TREMOR [None]
  - MOVEMENT DISORDER [None]
  - HYPERHIDROSIS [None]
